FAERS Safety Report 21318939 (Version 2)
Quarter: 2024Q3

REPORT INFORMATION
  Report Type: Spontaneous
  Country: US (occurrence: US)
  Receive Date: 20220911
  Receipt Date: 20240905
  Transmission Date: 20241017
  Serious: No
  Sender: SANOFI AVENTIS
  Company Number: US-SA-SAC20220829002294

PATIENT
  Age: 76 Year
  Sex: Male

DRUGS (4)
  1. CABLIVI [Suspect]
     Active Substance: CAPLACIZUMAB-YHDP
     Indication: Vasculitis necrotising
     Dosage: 11 MG, QD
     Route: 058
     Dates: start: 20220813
  2. CABLIVI [Suspect]
     Active Substance: CAPLACIZUMAB-YHDP
     Indication: Vasculitis necrotising
     Dosage: 11 MG, QD
     Route: 058
     Dates: start: 20220813
  3. CABLIVI [Suspect]
     Active Substance: CAPLACIZUMAB-YHDP
     Indication: Vasculitis necrotising
     Dosage: 11 MG, QD
     Route: 058
     Dates: start: 20220813
  4. CABLIVI [Suspect]
     Active Substance: CAPLACIZUMAB-YHDP
     Indication: Vasculitis necrotising
     Dosage: 11 MG, QD
     Route: 058
     Dates: start: 20220813

REACTIONS (5)
  - Hypotension [Unknown]
  - ADAMTS13 activity decreased [Unknown]
  - Epistaxis [Unknown]
  - Transfusion [Unknown]
  - Product use in unapproved indication [Unknown]

NARRATIVE: CASE EVENT DATE: 20220813
